FAERS Safety Report 26037893 (Version 1)
Quarter: 2025Q4

REPORT INFORMATION
  Report Type: Spontaneous
  Country: US (occurrence: US)
  Receive Date: 20251112
  Receipt Date: 20251112
  Transmission Date: 20260118
  Serious: Yes (Life-Threatening, Hospitalization, Other)
  Sender: BRACCO
  Company Number: US-BRACCO-2025US05959

PATIENT
  Age: 51 Year
  Sex: Male

DRUGS (12)
  1. LUMASON [Suspect]
     Active Substance: SULFUR HEXAFLUORIDE
     Indication: Echocardiogram
     Dosage: 2 ML, SINGLE
     Route: 042
     Dates: start: 20250820, end: 20250820
  2. LUMASON [Suspect]
     Active Substance: SULFUR HEXAFLUORIDE
     Indication: Echocardiogram
     Dosage: 2 ML, SINGLE
     Route: 042
     Dates: start: 20250820, end: 20250820
  3. LUMASON [Suspect]
     Active Substance: SULFUR HEXAFLUORIDE
     Indication: Echocardiogram
     Dosage: 2 ML, SINGLE
     Route: 042
     Dates: start: 20250820, end: 20250820
  4. ASPIRIN [Concomitant]
     Active Substance: ASPIRIN
     Dosage: 10 MG, QD
     Route: 048
  5. CRESTOR [Concomitant]
     Active Substance: ROSUVASTATIN CALCIUM
     Dosage: 40 MG QHS
     Route: 048
  6. DIOVAN [Concomitant]
     Active Substance: VALSARTAN
     Dosage: 80 MG, QD
  7. EFFIENT [Concomitant]
     Active Substance: PRASUGREL HYDROCHLORIDE
     Dosage: 10 MG, QD
     Route: 048
  8. LOPRESSOR [Concomitant]
     Active Substance: METOPROLOL TARTRATE
     Dosage: 50 MG, BID
     Route: 048
  9. VITAMINS [Concomitant]
     Active Substance: VITAMINS
     Dosage: 1 TAB DAILY
     Route: 048
  10. PRILOSEC OTC [Concomitant]
     Active Substance: OMEPRAZOLE MAGNESIUM
     Dosage: 20 MG, QD
     Route: 048
  11. VITAMIN D3 [Concomitant]
     Active Substance: CHOLECALCIFEROL
     Dosage: 2000 IU, QD
     Route: 048
  12. ZETIA [Concomitant]
     Active Substance: EZETIMIBE
     Dosage: 10 MG, QD
     Route: 048

REACTIONS (1)
  - Anaphylactic reaction [Recovered/Resolved]

NARRATIVE: CASE EVENT DATE: 20250820
